FAERS Safety Report 8550014-5 (Version None)
Quarter: 2012Q3

REPORT INFORMATION
  Report Type: 
  Country: None (occurrence: None)
  Receive Date: 20120730
  Receipt Date: 20120718
  Transmission Date: 20120928
  Serious: Yes (Other)
  Sender: FDA-Public Use
  Company Number: GB-JNJFOC-20120708953

PATIENT

DRUGS (5)
  1. CONCERTA [Suspect]
     Indication: FOETAL EXPOSURE DURING PREGNANCY
     Route: 064
     Dates: start: 20071026, end: 20110901
  2. FERROUS SULFATE TAB [Concomitant]
     Route: 064
     Dates: end: 20120126
  3. FERROUS SULFATE TAB [Concomitant]
     Route: 064
     Dates: end: 20120509
  4. FERROUS SULFATE TAB [Concomitant]
     Route: 064
     Dates: end: 20111103
  5. FERROUS SULFATE TAB [Concomitant]
     Route: 064
     Dates: end: 20111220

REACTIONS (1)
  - FOETAL DISTRESS SYNDROME [None]
